FAERS Safety Report 18521810 (Version 1)
Quarter: 2020Q4

REPORT INFORMATION
  Report Type: Spontaneous
  Country: CN (occurrence: CN)
  Receive Date: 20201119
  Receipt Date: 20201119
  Transmission Date: 20210114
  Serious: Yes (Death, Other)
  Sender: FDA-Public Use
  Company Number: CN-SUN PHARMACEUTICAL INDUSTRIES LTD-2020R1-268183

PATIENT
  Age: 63 Year
  Sex: Male

DRUGS (3)
  1. SINTILIMAB. [Suspect]
     Active Substance: SINTILIMAB
     Indication: ADENOCARCINOMA
     Dosage: 200 MILLIGRAM,EVERY 3 WEEKS
     Route: 065
  2. CARBOPLATIN. [Suspect]
     Active Substance: CARBOPLATIN
     Indication: ADENOCARCINOMA
     Dosage: UNK
     Route: 065
  3. PEMETREXED. [Suspect]
     Active Substance: PEMETREXED
     Indication: ADENOCARCINOMA
     Dosage: 500 MILLIGRAM/SQ. METER,UNK
     Route: 065

REACTIONS (3)
  - Abdominal discomfort [Fatal]
  - Decreased appetite [Fatal]
  - Disease progression [Fatal]
